FAERS Safety Report 7718678-3 (Version None)
Quarter: 2011Q3

REPORT INFORMATION
  Report Type: 
  Country: None (occurrence: None)
  Receive Date: 20110830
  Receipt Date: 20110825
  Transmission Date: 20111222
  Serious: Yes (Hospitalization)
  Sender: FDA-Public Use
  Company Number: US-B.I. PHARMACEUTICALS,INC./RIDGEFIELD-2011-BP-18871BP

PATIENT
  Sex: Female

DRUGS (12)
  1. CARVEDILOL [Concomitant]
     Indication: CARDIAC DISORDER
  2. SIMAVASTATIN [Concomitant]
     Indication: BLOOD CHOLESTEROL INCREASED
     Dosage: 10 MG
     Route: 048
     Dates: start: 20080101
  3. LOSARTAN [Concomitant]
     Indication: HYPERTENSION
     Dosage: 50 MG
     Route: 048
     Dates: start: 20080101
  4. NITROGLYCERIN [Concomitant]
     Indication: ATRIAL FIBRILLATION
     Route: 062
     Dates: start: 20060101
  5. CARVEDILOL [Concomitant]
     Indication: HYPERTENSION
     Dosage: 6.25 MG
     Route: 048
     Dates: start: 20100101
  6. VICODIN [Concomitant]
     Indication: BACK PAIN
     Route: 048
     Dates: start: 20090101
  7. ALBUTEROL SULFATE AUTOHALER [Concomitant]
     Indication: DYSPNOEA
     Route: 055
  8. PRADAXA [Suspect]
     Indication: ATRIAL FIBRILLATION
     Dosage: 300 MG
     Route: 048
     Dates: start: 20110101, end: 20110101
  9. ATROVENT [Concomitant]
     Indication: ASTHMA
     Dosage: 2 PUF
     Route: 055
     Dates: start: 20100101
  10. VERAPAMIL [Concomitant]
     Indication: ATRIAL FIBRILLATION
     Dosage: 60 MG
     Route: 048
     Dates: start: 20090101
  11. PRADAXA [Suspect]
     Dosage: 300 MG
     Route: 048
     Dates: start: 20110501
  12. ATROVENT [Concomitant]
     Indication: DYSPNOEA

REACTIONS (9)
  - WHEEZING [None]
  - COUGH [None]
  - CONTUSION [None]
  - URINARY TRACT INFECTION [None]
  - DYSPNOEA [None]
  - PULMONARY CONGESTION [None]
  - INFUSION SITE HAEMATOMA [None]
  - DIZZINESS [None]
  - FATIGUE [None]
